FAERS Safety Report 18311698 (Version 3)
Quarter: 2022Q1

REPORT INFORMATION
  Report Type: Spontaneous
  Country: PT (occurrence: PT)
  Receive Date: 20200925
  Receipt Date: 20220113
  Transmission Date: 20220423
  Serious: Yes (Death, Other)
  Sender: FDA-Public Use
  Company Number: PT-ASTELLAS-2020US032636

PATIENT
  Age: 55 Year
  Sex: Male

DRUGS (2)
  1. GILTERITINIB [Suspect]
     Active Substance: GILTERITINIB
     Indication: Acute myeloid leukaemia
     Route: 065
     Dates: start: 20200820
  2. GILTERITINIB [Suspect]
     Active Substance: GILTERITINIB
     Dosage: UNK UNK, UNKNOWN FREQ.
     Route: 065
     Dates: start: 20210318, end: 202106

REACTIONS (6)
  - Acute myeloid leukaemia refractory [Fatal]
  - Escherichia bacteraemia [Recovered/Resolved]
  - Klebsiella bacteraemia [Recovered/Resolved]
  - Cytomegalovirus infection reactivation [Unknown]
  - Acute graft versus host disease [Unknown]
  - Febrile neutropenia [Unknown]

NARRATIVE: CASE EVENT DATE: 20200829
